FAERS Safety Report 9116814 (Version 3)
Quarter: 2013Q4

REPORT INFORMATION
  Report Type: Report from Study
  Country: JP (occurrence: JP)
  Receive Date: 20130225
  Receipt Date: 20131211
  Transmission Date: 20140711
  Serious: Yes (Life-Threatening, Hospitalization)
  Sender: FDA-Public Use
  Company Number: JP-CELGENEUS-087-50794-13023025

PATIENT
  Age: 74 Year
  Sex: Female
  Weight: 46 kg

DRUGS (23)
  1. VIDAZA [Suspect]
     Indication: MYELODYSPLASTIC SYNDROME
     Dosage: 75 MILLIGRAM/SQ. METER
     Route: 041
     Dates: start: 20111107, end: 20111115
  2. VIDAZA [Suspect]
     Dosage: 75 MILLIGRAM/SQ. METER
     Route: 041
     Dates: start: 20111205, end: 20111213
  3. VIDAZA [Suspect]
     Dosage: 100 MILLIGRAM
     Route: 041
     Dates: start: 20120111, end: 20120119
  4. VIDAZA [Suspect]
     Dosage: 100 MILLIGRAM
     Route: 041
     Dates: start: 20120208, end: 20120216
  5. VIDAZA [Suspect]
     Dosage: 50 MILLIGRAM
     Route: 041
     Dates: start: 20120507, end: 20120515
  6. VIDAZA [Suspect]
     Dosage: 50 MILLIGRAM
     Route: 041
     Dates: start: 20120604, end: 20120612
  7. VIDAZA [Suspect]
     Dosage: 50 MILLIGRAM
     Route: 041
     Dates: start: 20120702, end: 20120710
  8. VIDAZA [Suspect]
     Dosage: 50 MILLIGRAM
     Route: 041
     Dates: start: 20120903, end: 20120911
  9. VIDAZA [Suspect]
     Dosage: 50 MILLIGRAM
     Route: 041
     Dates: start: 20121001, end: 20121010
  10. VIDAZA [Suspect]
     Dosage: 50 MILLIGRAM
     Route: 041
     Dates: start: 20121029, end: 20121106
  11. VIDAZA [Suspect]
     Dosage: 50 MILLIGRAM
     Route: 041
     Dates: start: 20121126, end: 20121204
  12. VIDAZA [Suspect]
     Dosage: 50 MILLIGRAM
     Route: 041
     Dates: start: 20130107, end: 20130116
  13. ADONA [Concomitant]
     Indication: PRODUCT USED FOR UNKNOWN INDICATION
     Route: 065
  14. RIKAVARIN [Concomitant]
     Indication: PRODUCT USED FOR UNKNOWN INDICATION
     Route: 065
  15. LOXONIN [Concomitant]
     Indication: PRODUCT USED FOR UNKNOWN INDICATION
     Route: 065
  16. PREDNISOLONE [Concomitant]
     Indication: PRODUCT USED FOR UNKNOWN INDICATION
     Route: 065
  17. GASTER D [Concomitant]
     Indication: PRODUCT USED FOR UNKNOWN INDICATION
     Route: 065
  18. MUCOSTA [Concomitant]
     Indication: PRODUCT USED FOR UNKNOWN INDICATION
     Route: 065
  19. MAGNESIUM OXIDE [Concomitant]
     Indication: PRODUCT USED FOR UNKNOWN INDICATION
     Route: 065
  20. LENDORMIN [Concomitant]
     Indication: PRODUCT USED FOR UNKNOWN INDICATION
     Route: 065
  21. GRAN [Concomitant]
     Indication: PRODUCT USED FOR UNKNOWN INDICATION
     Route: 065
     Dates: start: 20120217, end: 20120310
  22. GASMOTIN [Concomitant]
     Indication: PRODUCT USED FOR UNKNOWN INDICATION
     Route: 065
  23. NORVASC [Concomitant]
     Indication: PRODUCT USED FOR UNKNOWN INDICATION
     Route: 065

REACTIONS (3)
  - Neutropenia [Recovered/Resolved]
  - Neutropenia [Unknown]
  - Leukopenia [Unknown]
